FAERS Safety Report 7756278-X (Version None)
Quarter: 2011Q3

REPORT INFORMATION
  Report Type: 
  Country: None (occurrence: None)
  Receive Date: 20110916
  Receipt Date: 20110906
  Transmission Date: 20111222
  Serious: Yes (Other)
  Sender: FDA-Public Use
  Company Number: US-ROCHE-774699

PATIENT
  Sex: Male
  Weight: 205 kg

DRUGS (2)
  1. ACCUTANE [Suspect]
     Route: 048
     Dates: start: 20011101, end: 20020101
  2. ACCUTANE [Suspect]
     Indication: ACNE
     Route: 048
     Dates: start: 20000401, end: 20000801

REACTIONS (5)
  - STRESS [None]
  - INFLAMMATORY BOWEL DISEASE [None]
  - RECTAL POLYP [None]
  - HAEMORRHOIDS [None]
  - COLITIS ULCERATIVE [None]
